FAERS Safety Report 9405802 (Version 2)
Quarter: 2013Q3

REPORT INFORMATION
  Report Type: Spontaneous
  Country: US (occurrence: US)
  Receive Date: 20130717
  Receipt Date: 20130801
  Transmission Date: 20140515
  Serious: No
  Sender: FDA-Public Use
  Company Number: US-009507513-1307USA006952

PATIENT
  Sex: 0

DRUGS (1)
  1. LOTRIMIN AF JOCK ITCH SPRAY POWDER [Suspect]
     Indication: TINEA CRURIS
     Dosage: UNK, WEIGHT:133 GRAM
     Route: 061
     Dates: start: 2013, end: 2013

REACTIONS (2)
  - Application site pain [Unknown]
  - Drug ineffective [Unknown]
